FAERS Safety Report 7864886-0 (Version None)
Quarter: 2011Q4

REPORT INFORMATION
  Report Type: 
  Country: None (occurrence: None)
  Receive Date: 20111028
  Receipt Date: 20100913
  Transmission Date: 20120403
  Serious: No
  Sender: FDA-Public Use
  Company Number: US-GLAXOSMITHKLINE-A0880841A

PATIENT
  Age: 79 Year
  Sex: Male

DRUGS (3)
  1. ADVAIR DISKUS 100/50 [Suspect]
     Indication: ASTHMA
     Dosage: 1PUFF TWICE PER DAY
     Route: 055
     Dates: start: 20020901
  2. ALBUTEROL [Concomitant]
  3. IPRATROPIUM BROMIDE NEB [Concomitant]

REACTIONS (3)
  - OVERDOSE [None]
  - DIZZINESS [None]
  - FEELING ABNORMAL [None]
